FAERS Safety Report 9507498 (Version 1)
Quarter: 2013Q1

REPORT INFORMATION
  Report Type: Spontaneous
  Country: US (occurrence: None)
  Receive Date: 20130305
  Receipt Date: 20130305
  Transmission Date: 20140127
  Serious: Yes (Hospitalization)
  Sender: FDA-Public Use
  Company Number: 163-21880-12042053

PATIENT
  Age: 61 Year
  Sex: Male

DRUGS (12)
  1. REVLIMID (LENALIDOMIDE) (25 MILLIGRAM, CAPSULES) [Suspect]
     Indication: PLASMA CELL MYELOMA
     Route: 048
     Dates: start: 20120221
  2. SINGULAIR [Concomitant]
  3. AMLODIPINE (AMLODIPINE) [Concomitant]
  4. VITAMINS [Concomitant]
  5. LYRICA (PREGABALIN) [Concomitant]
  6. LOVAZA (OMEGA-3 MARINE TRIGLYCERIDES) [Concomitant]
  7. ZOFRAN (ONDANSETRON HYDROCHLORIDE) [Concomitant]
  8. ZOMETA (ZOLEDRONIC ACID) [Concomitant]
  9. ACYCLOVIR (ACICLOVIR) (ACICLOVIR) [Concomitant]
  10. HYDROCHLOROTHIAZIDE (HYDROCHLOROTHIAZIDE) [Concomitant]
  11. DECADRON (DEXAMETHASONE) [Concomitant]
  12. VELCADE (BORTEZOMIB) [Concomitant]

REACTIONS (1)
  - Blood potassium decreased [None]
